FAERS Safety Report 7474853-7 (Version None)
Quarter: 2011Q1

REPORT INFORMATION
  Report Type: 
  Country: None (occurrence: None)
  Receive Date: 20110302
  Receipt Date: 20100920
  Transmission Date: 20110831
  Serious: Yes (Other)
  Sender: FDA-Public Use
  Company Number: 163-21880-10092034

PATIENT
  Age: 82 Year
  Sex: Female

DRUGS (2)
  1. REVLIMID [Suspect]
     Indication: MULTIPLE MYELOMA
     Dosage: 10 MG, TWICE A WEEK FOR 3 WEEKS, PO; 10 MG, TWICE A WEEK FOR 3 WEEKS, PO
     Route: 048
     Dates: start: 20100913
  2. REVLIMID [Suspect]
     Indication: MULTIPLE MYELOMA
     Dosage: 10 MG, TWICE A WEEK FOR 3 WEEKS, PO; 10 MG, TWICE A WEEK FOR 3 WEEKS, PO
     Route: 048
     Dates: start: 20070205, end: 20100801

REACTIONS (3)
  - FALL [None]
  - MEMORY IMPAIRMENT [None]
  - UPPER LIMB FRACTURE [None]
